FAERS Safety Report 9168043 (Version 1)
Quarter: 2013Q1

REPORT INFORMATION
  Report Type: Spontaneous
  Country: GB (occurrence: None)
  Receive Date: 20130307
  Receipt Date: 20130307
  Transmission Date: 20140127
  Serious: Yes (Other)
  Sender: FDA-Public Use
  Company Number: GER/UKI/13/0028374

PATIENT
  Sex: Female

DRUGS (1)
  1. SERTRALINE (SERTRALINE) (SERTRALINE) [Suspect]
     Indication: DEPRESSION
     Dosage: 0.5 DOSAGE FORMS, 1 IN 1 D, ORAL
     Route: 048

REACTIONS (5)
  - Myalgia [None]
  - Back pain [None]
  - Musculoskeletal stiffness [None]
  - Musculoskeletal pain [None]
  - Cognitive disorder [None]
